FAERS Safety Report 16314166 (Version 1)
Quarter: 2019Q2

REPORT INFORMATION
  Report Type: Spontaneous
  Country: US (occurrence: US)
  Receive Date: 20190410
  Receipt Date: 20190410
  Transmission Date: 20190711
  Serious: No
  Sender: FDA-Public Use
  Company Number: None

PATIENT
  Age: 22 Year
  Sex: Female

DRUGS (1)
  1. STERILE WATER [Suspect]
     Active Substance: WATER
     Route: 030

REACTIONS (3)
  - Unresponsive to stimuli [None]
  - Disorientation [None]
  - Seizure [None]

NARRATIVE: CASE EVENT DATE: 20190123
